FAERS Safety Report 11406114 (Version 2)
Quarter: 2015Q3

REPORT INFORMATION
  Report Type: Report from Study
  Country: BR (occurrence: BR)
  Receive Date: 20150821
  Receipt Date: 20150909
  Transmission Date: 20151125
  Serious: Yes (Other)
  Sender: FDA-Public Use
  Company Number: BR-ABBVIE-15P-020-1448908-00

PATIENT
  Age: 59 Year
  Sex: Female
  Weight: 71 kg

DRUGS (14)
  1. SYNTHROID [Suspect]
     Active Substance: LEVOTHYROXINE SODIUM
     Indication: THYROID DISORDER
     Dosage: 1 TABLET OF 25 MCG + 1 TABLET OF 50 MCG; IN THE MORNING, IN FASTING
     Route: 048
     Dates: start: 2014, end: 201412
  2. SYNTHROID [Suspect]
     Active Substance: LEVOTHYROXINE SODIUM
     Dosage: 1 TABLET OF 25 MCG + 1 TABLET OF 50 MCG; IN THE MORNING, IN FASTING
     Route: 048
     Dates: start: 201504
  3. BUPROPION HYDROCHLORIDE. [Concomitant]
     Active Substance: BUPROPION HYDROCHLORIDE
     Indication: ANXIETY
     Route: 048
     Dates: start: 201504
  4. CAPTOPRIL. [Concomitant]
     Active Substance: CAPTOPRIL
     Indication: BLOOD PRESSURE MEASUREMENT
     Route: 048
     Dates: start: 201404
  5. SYNTHROID [Suspect]
     Active Substance: LEVOTHYROXINE SODIUM
     Route: 048
  6. EXODUS [Concomitant]
     Active Substance: ESCITALOPRAM OXALATE
     Indication: SCHIZOPHRENIA
  7. EXODUS [Concomitant]
     Active Substance: ESCITALOPRAM OXALATE
     Indication: EPILEPSY
  8. PRISTIQ EXTENDED RELEASE [Concomitant]
     Active Substance: DESVENLAFAXINE SUCCINATE
     Indication: BIPOLAR DISORDER
     Route: 048
     Dates: start: 201504
  9. EXODUS [Concomitant]
     Active Substance: ESCITALOPRAM OXALATE
     Indication: BIPOLAR DISORDER
     Dosage: DAILY DOSE: 1 TABLET; IN THE MORNING
     Route: 048
     Dates: start: 201504
  10. FRONTAL [Concomitant]
     Active Substance: ALPRAZOLAM
     Indication: SLEEP DISORDER THERAPY
     Dosage: DAILY DOSE: 1 TABLET; AT NIGHT
     Route: 048
     Dates: start: 201504
  11. GARDENAL [Concomitant]
     Active Substance: PHENOBARBITAL
     Indication: EPILEPSY
     Route: 048
  12. SYNTHROID [Suspect]
     Active Substance: LEVOTHYROXINE SODIUM
     Route: 048
  13. GARDENAL [Concomitant]
     Active Substance: PHENOBARBITAL
     Route: 048
  14. LEVOID [Concomitant]
     Active Substance: LEVOTHYROXINE
     Indication: THYROID DISORDER
     Route: 048
     Dates: start: 201412, end: 201504

REACTIONS (16)
  - Fall [Unknown]
  - Head injury [Recovered/Resolved]
  - Contusion [Recovering/Resolving]
  - White blood cell count decreased [Unknown]
  - Feeling abnormal [Not Recovered/Not Resolved]
  - Drug ineffective [Not Recovered/Not Resolved]
  - Hypothyroidism [Not Recovered/Not Resolved]
  - Neck injury [Unknown]
  - Syncope [Recovering/Resolving]
  - Immunodeficiency [Not Recovered/Not Resolved]
  - Head injury [Unknown]
  - Pain [Recovered/Resolved]
  - Somnolence [Not Recovered/Not Resolved]
  - Pain [Unknown]
  - Buttock crushing [Recovering/Resolving]
  - Musculoskeletal stiffness [Recovering/Resolving]

NARRATIVE: CASE EVENT DATE: 2014
